FAERS Safety Report 4550494-6 (Version None)
Quarter: 2005Q1

REPORT INFORMATION
  Report Type: 
  Country: None (occurrence: None)
  Receive Date: 20050110
  Receipt Date: 20040913
  Transmission Date: 20050727
  Serious: Yes (Other)
  Sender: FDA-Public Use
  Company Number: 16017

PATIENT
  Age: 80 Year
  Sex: Male
  Weight: 108.8633 kg

DRUGS (1)
  1. ADRIAMYCIN PFS [Suspect]
     Indication: LYMPHOMA

REACTIONS (3)
  - PLEURAL EFFUSION [None]
  - PYREXIA [None]
  - WHITE BLOOD CELL COUNT DECREASED [None]
